FAERS Safety Report 19804551 (Version 1)
Quarter: 2021Q3

REPORT INFORMATION
  Report Type: Spontaneous
  Country: CA (occurrence: CA)
  Receive Date: 20210908
  Receipt Date: 20210908
  Transmission Date: 20211014
  Serious: Yes (Death, Life-Threatening, Hospitalization, Disabling)
  Sender: FDA-Public Use
  Company Number: CA-PFIZER INC-202101116809

PATIENT
  Age: 67 Year
  Sex: Female
  Weight: 92 kg

DRUGS (28)
  1. CLOTRIMAZOLE. [Concomitant]
     Active Substance: CLOTRIMAZOLE
  2. HALOPERIDOL. [Concomitant]
     Active Substance: HALOPERIDOL
  3. HYDROMORPHONE [Concomitant]
     Active Substance: HYDROMORPHONE
  4. PANTOPRAZOLE [Concomitant]
     Active Substance: PANTOPRAZOLE
  5. PREGABALIN. [Concomitant]
     Active Substance: PREGABALIN
  6. VALSARTAN/HIDROCLOROTIAZIDA [Concomitant]
  7. K?DUR [Concomitant]
     Active Substance: POTASSIUM CHLORIDE
  8. ONDANSETRON [Concomitant]
     Active Substance: ONDANSETRON
  9. CARBOPLATIN. [Suspect]
     Active Substance: CARBOPLATIN
     Indication: BREAST CANCER METASTATIC
     Dosage: 410 MG, 1 EVERY 1 HOURS
     Route: 042
  10. AMITRIPTYLINE [Concomitant]
     Active Substance: AMITRIPTYLINE
  11. ASPIRIN [ACETYLSALICYLIC ACID] [Concomitant]
     Active Substance: ASPIRIN
  12. CITALOPRAM [Concomitant]
     Active Substance: CITALOPRAM HYDROBROMIDE
  13. DICLOFENAC [Concomitant]
     Active Substance: DICLOFENAC
  14. METOPROLOL. [Concomitant]
     Active Substance: METOPROLOL
     Route: 065
  15. ACCURETIC [Concomitant]
     Active Substance: HYDROCHLOROTHIAZIDE\QUINAPRIL HYDROCHLORIDE
  16. DEXAMETHASONE. [Concomitant]
     Active Substance: DEXAMETHASONE
     Route: 065
  17. METFORMIN/SITAGLIPTIN [Concomitant]
     Active Substance: METFORMIN\SITAGLIPTIN
  18. NOVORAPID [Concomitant]
     Active Substance: INSULIN ASPART
  19. SITAGLIPTIN [Concomitant]
     Active Substance: SITAGLIPTIN
  20. LORAZEPAM. [Concomitant]
     Active Substance: LORAZEPAM
  21. GEMCITABINE HYDROCHLORIDE. [Suspect]
     Active Substance: GEMCITABINE HYDROCHLORIDE
     Indication: BREAST CANCER METASTATIC
     Dosage: 1080 MG, 1 EVERY 30 MINUTES
     Route: 042
  22. ASAPHEN [Concomitant]
     Active Substance: ASPIRIN
  23. GLYBURIDE. [Concomitant]
     Active Substance: GLYBURIDE
  24. AMLODIPINE [Concomitant]
     Active Substance: AMLODIPINE BESYLATE
  25. CYCLOBENZAPRINE. [Concomitant]
     Active Substance: CYCLOBENZAPRINE
  26. PROCHLORPERAZINE. [Concomitant]
     Active Substance: PROCHLORPERAZINE
  27. ROSUVASTATIN. [Concomitant]
     Active Substance: ROSUVASTATIN
     Route: 065
  28. TRESIBA [Concomitant]
     Active Substance: INSULIN DEGLUDEC

REACTIONS (4)
  - Loss of consciousness [Fatal]
  - Anaphylactic shock [Fatal]
  - Cardio-respiratory arrest [Fatal]
  - Off label use [Unknown]
